FAERS Safety Report 11078882 (Version 1)
Quarter: 2015Q2

REPORT INFORMATION
  Report Type: Spontaneous
  Country: US (occurrence: US)
  Receive Date: 20150430
  Receipt Date: 20150430
  Transmission Date: 20150821
  Serious: No
  Sender: FDA-Public Use
  Company Number: US-EMD SERONO-7135432

PATIENT
  Sex: Male

DRUGS (6)
  1. SAIZEN [Suspect]
     Active Substance: SOMATROPIN
     Indication: SMALL FOR DATES BABY
     Route: 058
  2. SAIZEN [Suspect]
     Active Substance: SOMATROPIN
     Indication: DWARFISM
     Route: 058
  3. LUPRON [Concomitant]
     Active Substance: LEUPROLIDE ACETATE
     Indication: PRODUCT USED FOR UNKNOWN INDICATION
  4. MULTIVITAMIN                       /00097801/ [Concomitant]
     Active Substance: VITAMINS
     Indication: PRODUCT USED FOR UNKNOWN INDICATION
  5. SAIZEN [Suspect]
     Active Substance: SOMATROPIN
     Indication: PRECOCIOUS PUBERTY
     Route: 058
  6. SAIZEN [Suspect]
     Active Substance: SOMATROPIN
     Indication: BODY HEIGHT BELOW NORMAL
     Route: 058

REACTIONS (9)
  - Abnormal weight gain [Unknown]
  - Visual impairment [Unknown]
  - High density lipoprotein increased [Unknown]
  - Precocious puberty [Unknown]
  - Chromaturia [Unknown]
  - Mouth breathing [Unknown]
  - Headache [Recovered/Resolved]
  - Hearing impaired [Recovered/Resolved]
  - Wheezing [Unknown]
